FAERS Safety Report 9318318 (Version 1)
Quarter: 2013Q2

REPORT INFORMATION
  Report Type: Spontaneous
  Country: US (occurrence: US)
  Receive Date: 20130530
  Receipt Date: 20130530
  Transmission Date: 20140414
  Serious: No
  Sender: FDA-Public Use
  Company Number: US-NOVEN-12US005541

PATIENT
  Age: 9 Year
  Sex: Male
  Weight: 29.03 kg

DRUGS (4)
  1. DAYTRANA [Suspect]
     Indication: ATTENTION DEFICIT/HYPERACTIVITY DISORDER
     Dosage: 20 MG, UNK
     Route: 062
     Dates: start: 201207
  2. DAYTRANA [Suspect]
     Dosage: 15 MG, UNK
  3. MULTIVITAMINS [Concomitant]
     Indication: VITAMIN SUPPLEMENTATION
     Dosage: UNK
     Route: 048
  4. LORATADINE [Concomitant]
     Indication: SEASONAL ALLERGY
     Dosage: UNK
     Route: 048

REACTIONS (4)
  - Drug prescribing error [Not Recovered/Not Resolved]
  - Incorrect storage of drug [Not Recovered/Not Resolved]
  - Product quality issue [Recovered/Resolved]
  - No adverse event [None]
